FAERS Safety Report 23557691 (Version 1)
Quarter: 2024Q1

REPORT INFORMATION
  Report Type: Spontaneous
  Country: US (occurrence: US)
  Receive Date: 20240223
  Receipt Date: 20240223
  Transmission Date: 20240410
  Serious: No
  Sender: FDA-Public Use
  Company Number: US-MIMS-BCONMC-2097

PATIENT

DRUGS (2)
  1. INSULIN GLARGINE [Suspect]
     Active Substance: INSULIN GLARGINE
     Indication: Type 2 diabetes mellitus
     Dosage: 8 INTERNATIONAL UNIT PER MILLILITRE,TWICE A DAILY
     Route: 058
  2. INSULIN GLARGINE [Suspect]
     Active Substance: INSULIN GLARGINE
     Dosage: 8 INTERNATIONAL UNIT PER MILLILITRE,TWICE A DAILY BID
     Route: 058

REACTIONS (1)
  - Device mechanical issue [Unknown]
